FAERS Safety Report 8416734-8 (Version None)
Quarter: 2012Q2

REPORT INFORMATION
  Report Type: 
  Country: None (occurrence: None)
  Receive Date: 20120606
  Receipt Date: 20120531
  Transmission Date: 20120825
  Serious: Yes (Other)
  Sender: FDA-Public Use
  Company Number: US-PFIZER INC-2012132176

PATIENT
  Sex: Female
  Weight: 65.76 kg

DRUGS (7)
  1. XANAX [Suspect]
     Indication: INSOMNIA
  2. XANAX [Suspect]
     Indication: GASTROOESOPHAGEAL REFLUX DISEASE
  3. XANAX [Suspect]
     Indication: RELAXATION THERAPY
  4. PROTONIX [Suspect]
     Indication: GASTROOESOPHAGEAL REFLUX DISEASE
     Dosage: 40 MG, DAILY
     Dates: start: 20110101, end: 20120530
  5. NAPROXEN (ALEVE) [Concomitant]
     Indication: BACK PAIN
     Dosage: UNK
  6. TRAMADOL HCL [Suspect]
     Indication: BACK PAIN
     Dosage: UNK, AS NEEDED
     Dates: start: 20100101
  7. XANAX [Suspect]
     Indication: ANXIETY
     Dosage: 0.5 MG DAILY
     Route: 048
     Dates: start: 20110101, end: 20120527

REACTIONS (9)
  - BLOOD PRESSURE INCREASED [None]
  - SOMNOLENCE [None]
  - DRUG SCREEN POSITIVE [None]
  - URINARY TRACT INFECTION [None]
  - TREMOR [None]
  - WITHDRAWAL SYNDROME [None]
  - HEART RATE INCREASED [None]
  - NAUSEA [None]
  - DRUG INEFFECTIVE [None]
